FAERS Safety Report 4819425-5 (Version None)
Quarter: 2005Q4

REPORT INFORMATION
  Report Type: 
  Country: None (occurrence: None)
  Receive Date: 20051103
  Receipt Date: 20051024
  Transmission Date: 20060501
  Serious: Yes (Death, Hospitalization)
  Sender: FDA-Public Use
  Company Number: DE-JNJFOC-20051005732

PATIENT
  Age: 23 Year
  Sex: Male

DRUGS (2)
  1. ORAP [Suspect]
     Indication: DRUG USE FOR UNKNOWN INDICATION
     Dosage: TOOK A PACKAGE OF ORAP FORTE 4 MG
     Route: 048
  2. RISPERDAL CONSTA [Suspect]
     Indication: SCHIZOPHRENIA
     Route: 030

REACTIONS (3)
  - DEATH [None]
  - OVERDOSE [None]
  - SUICIDE ATTEMPT [None]
